FAERS Safety Report 5779642-7 (Version None)
Quarter: 2008Q2

REPORT INFORMATION
  Report Type: 
  Country: None (occurrence: None)
  Receive Date: 20080619
  Receipt Date: 20080611
  Transmission Date: 20081010
  Serious: Yes (Other)
  Sender: FDA-Public Use
  Company Number: AU-ABBOTT-08P-008-0457438-00

PATIENT
  Age: 71 Year
  Sex: Female

DRUGS (3)
  1. EPILIM [Suspect]
     Indication: MOOD ALTERED
     Route: 065
     Dates: start: 20070101, end: 20080101
  2. EPILIM [Suspect]
     Route: 065
     Dates: start: 20080101
  3. CONCOMITANT USE OF A NUMBER OF MEDICATIONS NOS [Concomitant]
     Indication: DRUG USE FOR UNKNOWN INDICATION

REACTIONS (1)
  - CONVULSION [None]
